FAERS Safety Report 7036850-5 (Version None)
Quarter: 2010Q4

REPORT INFORMATION
  Report Type: 
  Country: None (occurrence: None)
  Receive Date: 20101011
  Receipt Date: 20100930
  Transmission Date: 20110411
  Serious: Yes (Hospitalization)
  Sender: FDA-Public Use
  Company Number: US-ASTRAZENECA-2008UW28058

PATIENT
  Age: 37 Year
  Sex: Male
  Weight: 79.4 kg

DRUGS (10)
  1. SEROQUEL [Suspect]
     Indication: BIPOLAR DISORDER
     Route: 048
  2. SEROQUEL [Suspect]
     Route: 048
     Dates: start: 20020101
  3. SEROQUEL [Suspect]
     Route: 048
     Dates: start: 20070101
  4. SEROQUEL [Suspect]
     Route: 048
     Dates: start: 20090101
  5. DEPAKOTE [Concomitant]
  6. LITHIUM [Concomitant]
  7. LORTAB [Concomitant]
  8. ATIVAN [Concomitant]
  9. SOMA [Concomitant]
  10. IRON [Concomitant]
     Dates: start: 20100101

REACTIONS (6)
  - ANAEMIA [None]
  - ARRHYTHMIA [None]
  - HEART RATE INCREASED [None]
  - LIBIDO DECREASED [None]
  - SURGERY [None]
  - WEIGHT INCREASED [None]
